FAERS Safety Report 5197207-5 (Version None)
Quarter: 2006Q4

REPORT INFORMATION
  Report Type: 
  Country: None (occurrence: None)
  Receive Date: 20061227
  Receipt Date: 20061218
  Transmission Date: 20070319
  Serious: Yes (Other)
  Sender: FDA-Public Use
  Company Number: 2006153553

PATIENT
  Age: 75 Year
  Sex: Female

DRUGS (2)
  1. SOLU-MEDROL [Suspect]
     Indication: INTERSTITIAL LUNG DISEASE
     Dosage: 100 MG, INTRAVENOUS
     Route: 042
     Dates: start: 20061209, end: 20061211
  2. ELASPOL (SIVELESTAT) [Concomitant]

REACTIONS (1)
  - HYPOKALAEMIA [None]
